FAERS Safety Report 7303729-0 (Version None)
Quarter: 2011Q1

REPORT INFORMATION
  Report Type: 
  Country: None (occurrence: None)
  Receive Date: 20110221
  Receipt Date: 20110210
  Transmission Date: 20110831
  Serious: Yes (Other)
  Sender: FDA-Public Use
  Company Number: US-ROCHE-735743

PATIENT
  Sex: Male
  Weight: 99.8 kg

DRUGS (1)
  1. ACCUTANE [Suspect]
     Indication: ACNE
     Route: 065
     Dates: start: 19830101, end: 19841231

REACTIONS (19)
  - INTESTINAL OBSTRUCTION [None]
  - DYSPEPSIA [None]
  - BACK PAIN [None]
  - INTESTINAL HAEMORRHAGE [None]
  - CROHN'S DISEASE [None]
  - COLITIS ULCERATIVE [None]
  - PRURITUS [None]
  - INTERVERTEBRAL DISC DEGENERATION [None]
  - INFLAMMATORY BOWEL DISEASE [None]
  - PYREXIA [None]
  - GASTRIC DISORDER [None]
  - GASTROOESOPHAGEAL REFLUX DISEASE [None]
  - NECK INJURY [None]
  - RECTAL HAEMORRHAGE [None]
  - FRACTURE [None]
  - IRRITABLE BOWEL SYNDROME [None]
  - GASTROINTESTINAL INJURY [None]
  - ARTHRALGIA [None]
  - DEPRESSION [None]
